FAERS Safety Report 5387638-2 (Version None)
Quarter: 2007Q3

REPORT INFORMATION
  Report Type: 
  Country: None (occurrence: None)
  Receive Date: 20070712
  Receipt Date: 20070712
  Transmission Date: 20080115
  Serious: Yes (Hospitalization)
  Sender: FDA-Public Use
  Company Number: None

PATIENT
  Sex: Female
  Weight: 113 kg

DRUGS (3)
  1. CISPLATIN [Suspect]
  2. DOXORUBICIN HYDROCHLORIDE [Suspect]
  3. TAXOL [Suspect]

REACTIONS (8)
  - BLOOD CREATININE INCREASED [None]
  - BLOOD POTASSIUM DECREASED [None]
  - DIARRHOEA [None]
  - DIZZINESS [None]
  - MICROCOCCUS INFECTION [None]
  - NAUSEA [None]
  - NEUTROPHIL PERCENTAGE DECREASED [None]
  - WHITE BLOOD CELL COUNT DECREASED [None]
